FAERS Safety Report 25261626 (Version 1)
Quarter: 2025Q2

REPORT INFORMATION
  Report Type: Spontaneous
  Country: CY (occurrence: CY)
  Receive Date: 20250502
  Receipt Date: 20250502
  Transmission Date: 20250717
  Serious: Yes (Death, Hospitalization)
  Sender: BOEHRINGER INGELHEIM
  Company Number: CY-BoehringerIngelheim-2025-BI-024824

PATIENT
  Age: 90 Year
  Sex: Female

DRUGS (1)
  1. PRAXBIND [Suspect]
     Active Substance: IDARUCIZUMAB
     Indication: Haemorrhage intracranial

REACTIONS (1)
  - Haemorrhage intracranial [Fatal]

NARRATIVE: CASE EVENT DATE: 20250426
